FAERS Safety Report 10707101 (Version 1)
Quarter: 2015Q1

REPORT INFORMATION
  Report Type: Spontaneous
  Country: US (occurrence: None)
  Receive Date: 20150112
  Receipt Date: 20150112
  Transmission Date: 20150721
  Serious: Yes (Other)
  Sender: FDA-Public Use
  Company Number: None

PATIENT
  Age: 49 Year
  Sex: Female
  Weight: 102.06 kg

DRUGS (1)
  1. REXALL SINUS NASAL PUMP (OXYMETAZOLINE HCL 0.05%) [Suspect]
     Active Substance: OXYMETAZOLINE HYDROCHLORIDE
     Indication: SINUS CONGESTION
     Dates: start: 20150110

REACTIONS (4)
  - Burning sensation [None]
  - Insomnia [None]
  - Pain [None]
  - Eye irritation [None]

NARRATIVE: CASE EVENT DATE: 20150110
